FAERS Safety Report 7442645 (Version 5)
Quarter: 2012Q4

REPORT INFORMATION
  Report Type: Report from Study
  Country: AR (occurrence: AR)
  Receive Date: 20100628
  Receipt Date: 20121016
  Transmission Date: 20130627
  Serious: Yes (Death, Life-Threatening, Hospitalization)
  Sender: FDA-Public Use
  Company Number: AR-SANOFI-AVENTIS-2010SA036239

PATIENT
  Age: 82 Year
  Sex: Male

DRUGS (5)
  1. TAXOTERE [Suspect]
     Indication: PROSTATE CANCER
     Dosage: every 3 weeks
     Route: 041
     Dates: start: 20091210, end: 20091210
  2. TAXOTERE [Suspect]
     Indication: PROSTATE CANCER
     Dosage: every 3 weeks
     Route: 041
     Dates: start: 20100527, end: 20100527
  3. BLINDED THERAPY [Suspect]
     Indication: PROSTATE CANCER
     Route: 048
     Dates: start: 20091210, end: 20100604
  4. PREDNISONE [Suspect]
     Indication: PROSTATE CANCER
     Route: 048
     Dates: start: 20091210, end: 20100604
  5. DEXAMETHASONE [Suspect]
     Indication: PREMEDICATION
     Route: 065

REACTIONS (2)
  - Febrile neutropenia [Fatal]
  - Respiratory failure [Fatal]
